FAERS Safety Report 15150184 (Version 1)
Quarter: 2018Q3

REPORT INFORMATION
  Report Type: Spontaneous
  Country: US (occurrence: US)
  Receive Date: 20180716
  Receipt Date: 20180716
  Transmission Date: 20181010
  Serious: Yes (Other)
  Sender: FDA-Public Use
  Company Number: US-009507513-1807USA005667

PATIENT
  Age: 53 Year
  Sex: Female
  Weight: 76.6 kg

DRUGS (20)
  1. CELEBREX [Concomitant]
     Active Substance: CELECOXIB
     Dosage: UNK
  2. PROAIR HFA [Concomitant]
     Active Substance: ALBUTEROL SULFATE
  3. DUONEB [Concomitant]
     Active Substance: ALBUTEROL SULFATE\IPRATROPIUM BROMIDE
  4. FOSAMAX [Suspect]
     Active Substance: ALENDRONATE SODIUM
     Indication: OSTEOPOROSIS
     Dosage: UNK
     Dates: start: 2005, end: 2012
  5. ENBREL [Suspect]
     Active Substance: ETANERCEPT
     Indication: PRODUCT USED FOR UNKNOWN INDICATION
     Dosage: 25 MG, 2 TIMES/WK
     Route: 058
  6. ENBREL [Suspect]
     Active Substance: ETANERCEPT
     Dosage: UNK
     Route: 058
     Dates: start: 201307, end: 201404
  7. SULFASALAZINE. [Concomitant]
     Active Substance: SULFASALAZINE
  8. ELMIRON [Concomitant]
     Active Substance: PENTOSAN POLYSULFATE SODIUM
  9. ENBREL [Suspect]
     Active Substance: ETANERCEPT
     Dosage: UNK
     Route: 058
     Dates: start: 2014, end: 201411
  10. METHOTREXATE. [Suspect]
     Active Substance: METHOTREXATE
     Indication: RHEUMATOID ARTHRITIS
     Dosage: 7.5 MG, QWK (3 TABLETS)
     Route: 048
     Dates: start: 201605, end: 20170924
  11. CALCIUM (UNSPECIFIED) [Concomitant]
     Active Substance: CALCIUM
     Dosage: UNK
  12. NASONEX [Concomitant]
     Active Substance: MOMETASONE FUROATE
  13. TYLENOL ARTHRITIS PAIN [Concomitant]
     Active Substance: ACETAMINOPHEN
     Dosage: UNK
  14. FOLIC ACID. [Concomitant]
     Active Substance: FOLIC ACID
  15. ENBREL [Suspect]
     Active Substance: ETANERCEPT
     Dosage: UNK
     Dates: start: 200110, end: 200204
  16. SOLU?MEDROL [Concomitant]
     Active Substance: METHYLPREDNISOLONE SODIUM SUCCINATE
  17. XOPENEX [Concomitant]
     Active Substance: LEVALBUTEROL HYDROCHLORIDE
     Dosage: NEBULISER SOLUTION
  18. ORENCIA [Suspect]
     Active Substance: ABATACEPT
     Indication: PRODUCT USED FOR UNKNOWN INDICATION
     Dosage: 250 MG, Q4WK
     Route: 042
     Dates: start: 20100118, end: 20100413
  19. PREDNISONE. [Concomitant]
     Active Substance: PREDNISONE
     Dosage: UNK
  20. CALCIUM (UNSPECIFIED) [Concomitant]
     Active Substance: CALCIUM
     Dosage: UNK

REACTIONS (55)
  - Oesophagogastric fundoplasty [Unknown]
  - Joint dislocation [Unknown]
  - Bunion operation [Unknown]
  - Blood parathyroid hormone decreased [Unknown]
  - Hepatic cyst [Unknown]
  - Infection [Unknown]
  - Chills [Unknown]
  - Blood urea increased [Unknown]
  - Malaise [Unknown]
  - Ulna fracture [Recovered/Resolved]
  - Limb injury [Unknown]
  - Blood urea nitrogen/creatinine ratio increased [Unknown]
  - Biopsy bone marrow [Unknown]
  - Drug effect incomplete [Unknown]
  - Rheumatoid arthritis [Unknown]
  - Hypogammaglobulinaemia [Unknown]
  - Staphylococcal infection [Unknown]
  - Cataract operation [Unknown]
  - Arteriosclerosis coronary artery [Unknown]
  - Neutrophil count decreased [Unknown]
  - Sleep disorder due to a general medical condition [Unknown]
  - Rotator cuff syndrome [Recovering/Resolving]
  - Urinary tract infection [Unknown]
  - Rash [Unknown]
  - Gastrooesophageal reflux disease [Unknown]
  - Atypical femur fracture [Unknown]
  - Hand fracture [Unknown]
  - Monocyte count increased [Unknown]
  - Hypertension [Unknown]
  - Hyperlipidaemia [Unknown]
  - White blood cell count decreased [Unknown]
  - Impaired healing [Recovered/Resolved]
  - Urinary tract infection pseudomonal [Unknown]
  - Skin abrasion [Recovered/Resolved]
  - Blood albumin decreased [Unknown]
  - Dry mouth [Unknown]
  - Pyrexia [Unknown]
  - Device related infection [Unknown]
  - Pneumonia [Unknown]
  - Osteoporosis [Unknown]
  - Gait disturbance [Unknown]
  - Hypercalcaemia [Unknown]
  - Vitamin D deficiency [Unknown]
  - Lymphocyte count decreased [Unknown]
  - Fracture nonunion [Unknown]
  - Intraductal papillary mucinous neoplasm [Unknown]
  - Cataract operation [Unknown]
  - Mineral supplementation [Unknown]
  - Fatigue [Unknown]
  - Knee arthroplasty [Unknown]
  - Lumbar radiculopathy [Unknown]
  - Foot fracture [Unknown]
  - Pancreatic cyst [Unknown]
  - Pulmonary eosinophilia [Unknown]
  - Eye infection [Unknown]

NARRATIVE: CASE EVENT DATE: 20050504
